FAERS Safety Report 9816581 (Version 2)
Quarter: 2014Q1

REPORT INFORMATION
  Report Type: Spontaneous
  Country: US (occurrence: US)
  Receive Date: 20140114
  Receipt Date: 20140128
  Transmission Date: 20141002
  Serious: No
  Sender: FDA-Public Use
  Company Number: US-PFIZER INC-2014006274

PATIENT
  Age: 66 Year
  Sex: Male
  Weight: 74.83 kg

DRUGS (4)
  1. ZYVOX [Suspect]
     Indication: STAPHYLOCOCCAL INFECTION
     Dosage: 600 MG, 3X/DAY
  2. GABAPENTIN [Concomitant]
     Indication: HYPOTONIA
     Dosage: 300 MG, 4X/DAY
  3. FERROUS SULPHATE [Concomitant]
     Indication: BLOOD IRON DECREASED
     Dosage: 324 MG, 3X/DAY
  4. SEROQUEL [Concomitant]
     Indication: DEPRESSION
     Dosage: 100 MG, DAILY

REACTIONS (1)
  - Dry skin [Unknown]
